FAERS Safety Report 16322875 (Version 1)
Quarter: 2019Q2

REPORT INFORMATION
  Report Type: Spontaneous
  Country: US (occurrence: US)
  Receive Date: 20190516
  Receipt Date: 20190516
  Transmission Date: 20190711
  Serious: No
  Sender: FDA-Public Use
  Company Number: US-ASTRAZENECA-2019SE70539

PATIENT
  Age: 86 Year
  Sex: Male

DRUGS (5)
  1. QUETIAPINE FUMARATE. [Suspect]
     Active Substance: QUETIAPINE FUMARATE
     Indication: DEMENTIA ALZHEIMER^S TYPE
     Dosage: 200 MG IN THE DAY AND 100 MG AT NIGHT
     Route: 048
  2. QUETIAPINE FUMARATE. [Suspect]
     Active Substance: QUETIAPINE FUMARATE
     Indication: DEMENTIA ALZHEIMER^S TYPE
     Route: 048
  3. LORAZEPAM. [Concomitant]
     Active Substance: LORAZEPAM
  4. QUETIAPINE FUMARATE. [Suspect]
     Active Substance: QUETIAPINE FUMARATE
     Indication: DEMENTIA
     Dosage: 200 MG IN THE DAY AND 100 MG AT NIGHT
     Route: 048
  5. QUETIAPINE FUMARATE. [Suspect]
     Active Substance: QUETIAPINE FUMARATE
     Indication: DEMENTIA
     Route: 048

REACTIONS (3)
  - Chronic kidney disease [Unknown]
  - Agitation [Unknown]
  - Cardiac failure congestive [Unknown]
